FAERS Safety Report 18717028 (Version 1)
Quarter: 2021Q1

REPORT INFORMATION
  Report Type: Spontaneous
  Country: US (occurrence: US)
  Receive Date: 20210107
  Receipt Date: 20210107
  Transmission Date: 20210419
  Serious: No
  Sender: FDA-Public Use
  Company Number: None

PATIENT
  Age: 46 Year
  Sex: Male

DRUGS (2)
  1. SUCCINYLCHOLINE (SUCCINYLCHOLINE CHLORIDE 20MG/ML INJ) [Suspect]
     Active Substance: SUCCINYLCHOLINE CHLORIDE
     Indication: SURGERY
     Dates: start: 20200212, end: 20200212
  2. SEVOFLURANE (SEVOFLURANE LIQUID, INHL) [Suspect]
     Active Substance: SEVOFLURANE
     Indication: SURGERY
     Dates: start: 20200212, end: 20200212

REACTIONS (1)
  - Hyperthermia [None]

NARRATIVE: CASE EVENT DATE: 20200213
